FAERS Safety Report 7607398-1 (Version None)
Quarter: 2011Q3

REPORT INFORMATION
  Report Type: 
  Country: None (occurrence: None)
  Receive Date: 20110713
  Receipt Date: 20110630
  Transmission Date: 20111222
  Serious: Yes (Other)
  Sender: FDA-Public Use
  Company Number: CO-TYCO HEALTHCARE/MALLINCKRODT-T201101347

PATIENT
  Sex: Female

DRUGS (1)
  1. OPTIMARK [Suspect]
     Indication: NUCLEAR MAGNETIC RESONANCE IMAGING
     Dosage: 15 ML, SINGLE
     Route: 042
     Dates: start: 20110615, end: 20110615

REACTIONS (5)
  - DYSPNOEA [None]
  - STRIDOR [None]
  - WHEEZING [None]
  - DRY THROAT [None]
  - SKIN DISCOLOURATION [None]
